FAERS Safety Report 4915577-7 (Version None)
Quarter: 2006Q1

REPORT INFORMATION
  Report Type: 
  Country: None (occurrence: None)
  Receive Date: 20060113
  Receipt Date: 20060113
  Transmission Date: 20060701
  Serious: No
  Sender: FDA-Public Use
  Company Number: 2005SP003200

PATIENT
  Age: 31 Year
  Sex: Female
  Weight: 89.8122 kg

DRUGS (5)
  1. LUNESTA [Suspect]
     Dosage: ORAL
     Route: 048
     Dates: start: 20051001, end: 20051001
  2. SINGULAIR [Concomitant]
  3. CYMBALTA [Concomitant]
  4. CLARITIN [Concomitant]
  5. TYLENOL (CAPLET) [Concomitant]

REACTIONS (1)
  - DYSGEUSIA [None]
